FAERS Safety Report 4716307-4 (Version None)
Quarter: 2005Q3

REPORT INFORMATION
  Report Type: 
  Country: None (occurrence: None)
  Receive Date: 20050711
  Receipt Date: 20041014
  Transmission Date: 20060218
  Serious: Yes (Hospitalization)
  Sender: FDA-Public Use
  Company Number: 383557

PATIENT
  Sex: Female

DRUGS (2)
  1. CELLCEPT [Suspect]
     Indication: PROPHYLAXIS AGAINST TRANSPLANT REJECTION
     Dosage: 1 GRAM 2 PER DAY
     Dates: start: 20040815
  2. CELLCEPT [Suspect]
     Indication: TRANSPLANT
     Dosage: 1 GRAM 2 PER DAY
     Dates: start: 20040815

REACTIONS (4)
  - ANAEMIA [None]
  - DIARRHOEA [None]
  - NAUSEA [None]
  - VOMITING [None]
